FAERS Safety Report 9880000 (Version 1)
Quarter: 2014Q1

REPORT INFORMATION
  Report Type: Spontaneous
  Country: US (occurrence: US)
  Receive Date: 20140207
  Receipt Date: 20140207
  Transmission Date: 20141002
  Serious: No
  Sender: FDA-Public Use
  Company Number: US-009507513-1401USA010437

PATIENT
  Age: 31 Year
  Sex: Female

DRUGS (4)
  1. FOLLISTIM AQ CARTRIDGE [Suspect]
     Indication: ASSISTED FERTILISATION
     Dosage: 75 MG, QD
     Route: 058
     Dates: start: 201309
  2. FOLLISTIM AQ CARTRIDGE [Suspect]
     Dosage: 75 MG, QD
     Route: 058
     Dates: start: 20140109, end: 20140118
  3. FOLLISTIM AQ CARTRIDGE [Suspect]
     Dosage: 75 MG, QD
     Route: 058
     Dates: start: 2010
  4. VITAMINS (UNSPECIFIED) [Concomitant]
     Indication: VITAMIN SUPPLEMENTATION

REACTIONS (3)
  - Ovarian hyperstimulation syndrome [Unknown]
  - Blood follicle stimulating hormone decreased [Unknown]
  - Blood oestrogen decreased [Unknown]
